FAERS Safety Report 10795961 (Version 1)
Quarter: 2015Q1

REPORT INFORMATION
  Report Type: Spontaneous
  Country: DE (occurrence: DE)
  Receive Date: 20150216
  Receipt Date: 20150216
  Transmission Date: 20150721
  Serious: Yes (Other)
  Sender: FDA-Public Use
  Company Number: DE-ASTELLAS-2014US019639

PATIENT
  Sex: Female
  Weight: 52 kg

DRUGS (2)
  1. ORTHOMOL IMMUN [Interacting]
     Active Substance: IRON\MINERALS\VITAMINS
     Indication: NASOPHARYNGITIS
     Dosage: UNK, UNKNOWN FREQ.
     Route: 048
  2. PROGRAF [Suspect]
     Active Substance: TACROLIMUS\TACROLIMUS ANHYDROUS
     Indication: RENAL TRANSPLANT
     Dosage: UNK, UNKNOWN FREQ.
     Route: 065

REACTIONS (7)
  - Cystitis [Unknown]
  - Gastrointestinal disorder [Recovered/Resolved]
  - Drug level increased [Unknown]
  - Drug interaction [Unknown]
  - Diarrhoea [Recovered/Resolved]
  - Blood creatinine increased [Unknown]
  - Infection [Unknown]

NARRATIVE: CASE EVENT DATE: 20141130
